FAERS Safety Report 9221474 (Version 1)
Quarter: 2013Q1

REPORT INFORMATION
  Report Type: Spontaneous
  Country: US (occurrence: None)
  Receive Date: 20120831
  Receipt Date: 20120831
  Transmission Date: 20140127
  Serious: No
  Sender: FDA-Public Use
  Company Number: 1000030985

PATIENT
  Age: 69 Year
  Sex: Female

DRUGS (16)
  1. DALIRESP [Suspect]
     Indication: CHRONIC OBSTRUCTIVE PULMONARY DISEASE
     Route: 048
     Dates: start: 20120518, end: 20120525
  2. DALIRESP [Suspect]
     Indication: CHRONIC OBSTRUCTIVE PULMONARY DISEASE
     Route: 048
     Dates: start: 20120604
  3. ADVAIR [Suspect]
     Indication: CHRONIC OBSTRUCTIVE PULMONARY DISEASE
     Dosage: 250/50 MCG 1 PUFF
     Route: 055
     Dates: start: 2007
  4. COMBIVENT (COMBIVENT) (COMBIVENT) [Concomitant]
  5. TOPROL (METOPROLOL SUCCINATE) (METOPROLOL SUCCINATE) [Concomitant]
  6. SINGULAIR [Concomitant]
  7. ADVIL PM (DIPHENHYDRAMINE, IBUPROFEN) (DIPHENHYDRAMINE, IBUPROFEN) [Concomitant]
  8. OXYCODONE (OXYCODONE) (OXYCODONE) [Concomitant]
  9. SPIRIVA (TIOTROPIUM BROMIDE) (TIOTROPIUM BROMIDE) [Concomitant]
  10. HYDROCODONE (HYDROCODONE) (HYDROCODONE0 [Concomitant]
  11. CALCIUM (CALCIUM) (CALCIUM) [Concomitant]
  12. MULTIVITAMIN (MULTIVITAMIN) (MULTIVITAMIN) [Concomitant]
  13. XANAX (ALPRAZOLAM) (ALPRAZOLAM0 [Concomitant]
  14. DOXEPIN (DOXEPIN) (DOXEPIN) [Concomitant]
  15. TRAMADOL (TRAMADOL) (TRAMADOL) [Concomitant]
  16. HYPROMELLOSE (HYPROMELLOSE) (HYPROMELLOSE) [Concomitant]

REACTIONS (11)
  - Drug interaction [None]
  - Dizziness [None]
  - Flushing [None]
  - Tinnitus [None]
  - Influenza [None]
  - Abdominal pain upper [None]
  - Nausea [None]
  - Back pain [None]
  - Insomnia [None]
  - Head discomfort [None]
  - Feeling hot [None]
